FAERS Safety Report 11408637 (Version 1)
Quarter: 2015Q3

REPORT INFORMATION
  Report Type: Spontaneous
  Country: US (occurrence: US)
  Receive Date: 20150822
  Receipt Date: 20150822
  Transmission Date: 20151125
  Serious: No
  Sender: FDA-Public Use
  Company Number: US-009507513-1508USA004829

PATIENT
  Age: 28 Year
  Sex: Male
  Weight: 185 kg

DRUGS (1)
  1. NUVARING [Suspect]
     Active Substance: ETHINYL ESTRADIOL\ETONOGESTREL
     Dosage: UNKNOWN

REACTIONS (3)
  - Genital discomfort [Unknown]
  - Skin disorder [Unknown]
  - Penile burning sensation [Unknown]

NARRATIVE: CASE EVENT DATE: 201507
